FAERS Safety Report 21979642 (Version 1)
Quarter: 2023Q1

REPORT INFORMATION
  Report Type: Spontaneous
  Country: BR (occurrence: BR)
  Receive Date: 20230210
  Receipt Date: 20230210
  Transmission Date: 20230418
  Serious: Yes (Other)
  Sender: FDA-Public Use
  Company Number: BR-ELI_LILLY_AND_COMPANY-BR202301014126

PATIENT
  Sex: Female

DRUGS (2)
  1. BASAGLAR [Suspect]
     Active Substance: INSULIN GLARGINE
     Indication: Product used for unknown indication
     Dosage: 34 INTERNATIONAL UNIT, UNKNOWN
     Route: 065
     Dates: start: 202208
  2. XIGDUO XR [Concomitant]
     Active Substance: DAPAGLIFLOZIN PROPANEDIOL\METFORMIN HYDROCHLORIDE
     Indication: Product used for unknown indication
     Dosage: 5 MG, UNKNOWN (5 MG/1000 MG)
     Route: 065

REACTIONS (5)
  - Cervical polyp [Unknown]
  - Blood glucose increased [Unknown]
  - Calcinosis [Recovered/Resolved]
  - Wrong technique in product usage process [Unknown]
  - Cataract [Unknown]

NARRATIVE: CASE EVENT DATE: 20221001
